FAERS Safety Report 14454215 (Version 6)
Quarter: 2018Q2

REPORT INFORMATION
  Report Type: Report from Study
  Country: ES (occurrence: ES)
  Receive Date: 20180129
  Receipt Date: 20180423
  Transmission Date: 20180711
  Serious: Yes (Hospitalization, Other)
  Sender: FDA-Public Use
  Company Number: ES-PFIZER INC-2018031968

PATIENT
  Age: 62 Year
  Sex: Female
  Weight: 72 kg

DRUGS (13)
  1. IRINOTECAN HCL [Suspect]
     Active Substance: IRINOTECAN HYDROCHLORIDE
     Dosage: 262 MG, CYCLIC
     Route: 041
     Dates: start: 20150529, end: 20150529
  2. LEUCOVORIN. [Suspect]
     Active Substance: LEUCOVORIN
     Indication: COLORECTAL CANCER METASTATIC
     Dosage: 728 MG, CYCLIC
     Route: 041
     Dates: start: 20150508, end: 20150508
  3. 5-FU /00098801/ [Suspect]
     Active Substance: FLUOROURACIL
     Indication: COLORECTAL CANCER METASTATIC
     Dosage: 4386 MG, CYCLIC
     Route: 041
     Dates: start: 20150508, end: 20150508
  4. AFLIBERCEPT [Suspect]
     Active Substance: AFLIBERCEPT
     Dosage: 288 MG, CYCLIC
     Route: 041
     Dates: start: 20150529, end: 20150529
  5. SIMVASTATIN. [Concomitant]
     Active Substance: SIMVASTATIN
     Dosage: 20 MG, 1X/DAY
     Route: 065
     Dates: start: 20130101
  6. IRINOTECAN HCL [Suspect]
     Active Substance: IRINOTECAN HYDROCHLORIDE
     Indication: COLORECTAL CANCER METASTATIC
     Dosage: 314.4 MG, CYCLIC
     Route: 041
     Dates: start: 20150508, end: 20150508
  7. OMEPRAZOLE. [Concomitant]
     Active Substance: OMEPRAZOLE
     Indication: PROPHYLAXIS
     Dosage: 20 MG, 1X/DAY
     Route: 065
     Dates: start: 20130101
  8. EUTIROX [Concomitant]
     Active Substance: LEVOTHYROXINE SODIUM
     Dosage: 112 UG, 1X/DAY (EVERY 24 HOURS)
     Route: 065
     Dates: start: 20130101
  9. 5-FU /00098801/ [Suspect]
     Active Substance: FLUOROURACIL
     Dosage: 4368 MG, CYCLIC
     Route: 041
     Dates: start: 20150529, end: 20150529
  10. AFLIBERCEPT [Suspect]
     Active Substance: AFLIBERCEPT
     Indication: COLORECTAL CANCER METASTATIC
     Dosage: 288 MG, CYCLIC
     Route: 041
     Dates: start: 20150508, end: 20150508
  11. LEUCOVORIN. [Suspect]
     Active Substance: LEUCOVORIN
     Dosage: 728 MG, CYCLIC
     Route: 041
     Dates: start: 20150529, end: 20150529
  12. 5-FU /00098801/ [Suspect]
     Active Substance: FLUOROURACIL
     Dosage: 728 MG, CYCLIC
     Route: 040
     Dates: start: 20150529, end: 20150529
  13. 5-FU /00098801/ [Suspect]
     Active Substance: FLUOROURACIL
     Dosage: 728 MG, CYCLIC
     Route: 040
     Dates: start: 20150508, end: 20150508

REACTIONS (10)
  - Vomiting [Recovered/Resolved]
  - Metabolic acidosis [Recovered/Resolved]
  - Thrombocytopenia [Recovered/Resolved]
  - Asthenia [Recovered/Resolved]
  - Diarrhoea [Recovered/Resolved]
  - Diarrhoea [Recovered/Resolved]
  - Anaemia [Recovered/Resolved]
  - Neutropenia [Recovered/Resolved]
  - Stomatitis [Recovered/Resolved]
  - Abdominal infection [Recovered/Resolved]

NARRATIVE: CASE EVENT DATE: 20150602
